FAERS Safety Report 12818960 (Version 1)
Quarter: 2016Q4

REPORT INFORMATION
  Report Type: Spontaneous
  Country: SI (occurrence: SI)
  Receive Date: 20161006
  Receipt Date: 20161006
  Transmission Date: 20170207
  Serious: Yes (Other)
  Sender: FDA-Public Use
  Company Number: SI-JNJFOC-20160920225

PATIENT
  Age: 47 Year
  Sex: Female
  Weight: 61 kg

DRUGS (3)
  1. SIMPONI [Suspect]
     Active Substance: GOLIMUMAB
     Indication: ARTHROPATHY
     Route: 058
     Dates: start: 20130907, end: 20160820
  2. SIMPONI [Suspect]
     Active Substance: GOLIMUMAB
     Indication: ARTHROPATHY
     Route: 058
     Dates: start: 20130819
  3. LYRICA [Concomitant]
     Active Substance: PREGABALIN
     Route: 065

REACTIONS (1)
  - Urinary tract infection bacterial [Recovered/Resolved]

NARRATIVE: CASE EVENT DATE: 20160907
